FAERS Safety Report 5389437-4 (Version None)
Quarter: 2007Q3

REPORT INFORMATION
  Report Type: 
  Country: None (occurrence: None)
  Receive Date: 20070717
  Receipt Date: 20070705
  Transmission Date: 20080115
  Serious: Yes (Other)
  Sender: FDA-Public Use
  Company Number: US-ROCHE-479471

PATIENT
  Sex: Female
  Weight: 56.7 kg

DRUGS (3)
  1. ACCUTANE [Suspect]
     Indication: ACNE
     Route: 048
     Dates: start: 19970304, end: 19970630
  2. ZOLOFT [Concomitant]
     Indication: DEPRESSION
  3. DEMULEN 1/35-21 [Concomitant]
     Dosage: STRENGHT AND FORMULATION REPORTED AS 1/35.

REACTIONS (12)
  - ANAEMIA [None]
  - ARTHRALGIA [None]
  - BACK INJURY [None]
  - COLITIS ULCERATIVE [None]
  - CONSTIPATION [None]
  - DEPRESSION [None]
  - INFLAMMATORY BOWEL DISEASE [None]
  - IRRITABLE BOWEL SYNDROME [None]
  - PROCTITIS [None]
  - PROCTITIS ULCERATIVE [None]
  - RECTAL HAEMORRHAGE [None]
  - SUICIDAL IDEATION [None]
